FAERS Safety Report 9760378 (Version 2)
Quarter: 2013Q4

REPORT INFORMATION
  Report Type: Spontaneous
  Country: US (occurrence: US)
  Receive Date: 20131216
  Receipt Date: 20131216
  Transmission Date: 20140711
  Serious: No
  Sender: FDA-Public Use
  Company Number: US-GILEAD-2010-0029180

PATIENT
  Sex: Female

DRUGS (12)
  1. LETAIRIS [Suspect]
     Indication: PULMONARY ARTERIAL HYPERTENSION
     Route: 048
     Dates: start: 20100422
  2. REVATIO [Concomitant]
  3. FLAGYL [Concomitant]
  4. AUGMENTIN [Concomitant]
  5. TYLENOL [Concomitant]
  6. CARDIZEM CD [Concomitant]
  7. ECOTRIN [Concomitant]
  8. PROPYLTHIOURACIL [Concomitant]
  9. METOPROLOL TARTRATE [Concomitant]
  10. DIGOXIN [Concomitant]
  11. DUONEB [Concomitant]
  12. PROTONIX [Concomitant]

REACTIONS (1)
  - Unevaluable event [Unknown]
